FAERS Safety Report 10735913 (Version 2)
Quarter: 2015Q1

REPORT INFORMATION
  Report Type: Spontaneous
  Country: US (occurrence: US)
  Receive Date: 20150126
  Receipt Date: 20150130
  Transmission Date: 20150721
  Serious: Yes (Other)
  Sender: FDA-Public Use
  Company Number: US-TEVA-535875USA

PATIENT
  Age: 16 Year
  Sex: Male

DRUGS (2)
  1. LOXAPINE. [Suspect]
     Active Substance: LOXAPINE
     Indication: PSYCHIATRIC SYMPTOM
     Dosage: TAPERED OFF OVER 3-4W
     Route: 065
  2. QUETIAPINE [Concomitant]
     Active Substance: QUETIAPINE
     Dosage: UP-TITRATED TO 150MG/DAY
     Route: 065

REACTIONS (1)
  - Dyskinesia [Unknown]
